FAERS Safety Report 10206551 (Version 1)
Quarter: 2014Q2

REPORT INFORMATION
  Report Type: Spontaneous
  Country: US (occurrence: None)
  Receive Date: 20140527
  Receipt Date: 20140527
  Transmission Date: 20141212
  Serious: Yes (Hospitalization)
  Sender: FDA-Public Use
  Company Number: None

PATIENT
  Age: 70 Year
  Sex: Female

DRUGS (18)
  1. FORTEO 600MCG LILLY [Suspect]
     Indication: SENILE OSTEOPOROSIS
     Dosage: 20MCG, DIALY, SUB Q
     Route: 058
     Dates: start: 20130214
  2. PAXIL [Concomitant]
  3. AMBIEN [Concomitant]
  4. ZOCOR [Concomitant]
  5. ADVAIR INHALER [Concomitant]
  6. NITROGLYCERIN [Concomitant]
  7. DIOVAN [Concomitant]
  8. PRILOSEC [Concomitant]
  9. SPIRIVA [Concomitant]
  10. TAMBOCOR [Concomitant]
  11. PROAIR [Concomitant]
  12. XANAX [Concomitant]
  13. CALCIUM CITRATE + D [Concomitant]
  14. CENTRUM SILVER [Concomitant]
  15. SUPER MAX COMPLEX B [Concomitant]
  16. VITAMIN D [Concomitant]
  17. AMOXICILLIN [Concomitant]
  18. PREDNISONE [Concomitant]

REACTIONS (1)
  - Sepsis [None]
